FAERS Safety Report 14327922 (Version 1)
Quarter: 2017Q4

REPORT INFORMATION
  Report Type: Spontaneous
  Country: US (occurrence: US)
  Receive Date: 20171227
  Receipt Date: 20171227
  Transmission Date: 20180321
  Serious: Yes (Hospitalization)
  Sender: FDA-Public Use
  Company Number: US-BAYER-2017-217656

PATIENT
  Age: 65 Year
  Sex: Male
  Weight: 97.98 kg

DRUGS (5)
  1. XARELTO [Suspect]
     Active Substance: RIVAROXABAN
     Indication: THROMBOSIS PROPHYLAXIS
  2. XARELTO [Suspect]
     Active Substance: RIVAROXABAN
     Indication: CEREBROVASCULAR ACCIDENT PROPHYLAXIS
  3. MULTAQ [Concomitant]
     Active Substance: DRONEDARONE
     Indication: WOLFF-PARKINSON-WHITE SYNDROME
     Dosage: UNK
     Route: 065
  4. ACETYLSALICYLIC ACID (} 100 MG) [Suspect]
     Active Substance: ASPIRIN
     Indication: WOLFF-PARKINSON-WHITE SYNDROME
     Dosage: 325 MG, QD
     Route: 048
     Dates: end: 20170728
  5. XARELTO [Suspect]
     Active Substance: RIVAROXABAN
     Indication: ATRIAL FIBRILLATION
     Dosage: 20 MG, QD
     Route: 048
     Dates: start: 20160126, end: 20170725

REACTIONS (2)
  - Gastrointestinal haemorrhage [Recovering/Resolving]
  - Gingival bleeding [Recovered/Resolved]

NARRATIVE: CASE EVENT DATE: 201707
